FAERS Safety Report 6196333-1 (Version None)
Quarter: 2009Q2

REPORT INFORMATION
  Report Type: 
  Country: None (occurrence: None)
  Receive Date: 20090515
  Receipt Date: 20090131
  Transmission Date: 20091009
  Serious: No
  Sender: FDA-Public Use
  Company Number: AE 2009-021

PATIENT
  Sex: Female

DRUGS (1)
  1. FAZACLO ODT [Suspect]
     Dosage: 250 MG DAILY PO
     Route: 048
     Dates: start: 20080312, end: 20090216

REACTIONS (1)
  - MENTAL STATUS CHANGES [None]
